FAERS Safety Report 12409754 (Version 1)
Quarter: 2016Q2

REPORT INFORMATION
  Report Type: Spontaneous
  Country: US (occurrence: US)
  Receive Date: 20160527
  Receipt Date: 20160527
  Transmission Date: 20160815
  Serious: No
  Sender: FDA-Public Use
  Company Number: US-CELGENEUS-USA-2016054710

PATIENT
  Age: 57 Year
  Sex: Female

DRUGS (2)
  1. OTEZLA [Suspect]
     Active Substance: APREMILAST
     Indication: PSORIASIS
     Route: 048
     Dates: end: 201605
  2. OTEZLA [Suspect]
     Active Substance: APREMILAST
     Route: 048
     Dates: start: 201605

REACTIONS (3)
  - Gastroenteritis viral [Unknown]
  - Psoriasis [Unknown]
  - Drug dose omission [Unknown]

NARRATIVE: CASE EVENT DATE: 201605
